FAERS Safety Report 7050070-X (Version None)
Quarter: 2010Q4

REPORT INFORMATION
  Report Type: 
  Country: None (occurrence: None)
  Receive Date: 20101018
  Receipt Date: 20101006
  Transmission Date: 20110411
  Serious: Yes (Death, Hospitalization)
  Sender: FDA-Public Use
  Company Number: DK-WYE-H18164810

PATIENT
  Age: 52 Year
  Sex: Male

DRUGS (2)
  1. CORDARONE [Suspect]
     Indication: ATRIAL FIBRILLATION
     Dosage: DOSE NOT PROVIDED
     Route: 048
     Dates: start: 20010821, end: 20040505
  2. CORDARONE [Suspect]
     Dosage: DOSE NOT PROVIDED
     Route: 048
     Dates: start: 20060226, end: 20060501

REACTIONS (4)
  - DISEASE PROGRESSION [None]
  - PHOTOSENSITIVITY REACTION [None]
  - PNEUMONIA [None]
  - PULMONARY FIBROSIS [None]
